FAERS Safety Report 5353870-7 (Version None)
Quarter: 2007Q2

REPORT INFORMATION
  Report Type: 
  Country: None (occurrence: None)
  Receive Date: 20070521
  Receipt Date: 20070129
  Transmission Date: 20071010
  Serious: No
  Sender: FDA-Public Use
  Company Number: WAES 0701USA04896

PATIENT
  Age: 67 Year
  Sex: Female

DRUGS (4)
  1. JANUVIA [Suspect]
     Indication: BLOOD GLUCOSE
     Dosage: 100 MG/DAILY/PO
     Route: 048
     Dates: start: 20061229
  2. ZETIA [Concomitant]
  3. ZOLOFT [Concomitant]
  4. ATENOLOL [Concomitant]

REACTIONS (1)
  - MYALGIA [None]
